FAERS Safety Report 9747030 (Version 1)
Quarter: 2013Q4

REPORT INFORMATION
  Report Type: Spontaneous
  Country: US (occurrence: US)
  Receive Date: 20131211
  Receipt Date: 20131211
  Transmission Date: 20140711
  Serious: Yes (Other)
  Sender: FDA-Public Use
  Company Number: US-BAXTER-2013BAX049703

PATIENT
  Age: 59 Year
  Sex: Female

DRUGS (12)
  1. GAMMAGARD LIQUID [Suspect]
     Indication: HASHIMOTO^S ENCEPHALOPATHY
     Dosage: 2 GM/KG
     Route: 042
  2. GAMMAGARD LIQUID [Suspect]
     Indication: MUSCLE RIGIDITY
  3. GAMMAGARD LIQUID [Suspect]
     Indication: ENCEPHALOMYELITIS
  4. GAMMAGARD LIQUID [Suspect]
     Indication: MYOCLONUS
  5. GAMMAGARD LIQUID [Suspect]
     Indication: OFF LABEL USE
  6. PREDNISONE [Concomitant]
     Indication: STATUS EPILEPTICUS
  7. LEVETIRACETAM [Concomitant]
     Indication: STATUS EPILEPTICUS
  8. TOPIRAMATE [Concomitant]
     Indication: STATUS EPILEPTICUS
  9. PHENYTOIN [Concomitant]
     Indication: STATUS EPILEPTICUS
  10. LACOSAMIDE [Concomitant]
     Indication: STATUS EPILEPTICUS
  11. GABAPENTIN [Concomitant]
     Indication: STATUS EPILEPTICUS
  12. METHYLPREDNISOLONE [Concomitant]
     Indication: STATUS EPILEPTICUS
     Route: 042

REACTIONS (1)
  - Drug ineffective [Not Recovered/Not Resolved]
